FAERS Safety Report 5285848-6 (Version None)
Quarter: 2007Q1

REPORT INFORMATION
  Report Type: 
  Country: None (occurrence: None)
  Receive Date: 20070329
  Receipt Date: 20070314
  Transmission Date: 20070707
  Serious: Yes (Other)
  Sender: FDA-Public Use
  Company Number: B0463233A

PATIENT
  Age: 57 Year
  Sex: Female

DRUGS (9)
  1. FLUTICASONE PROPIONATE + SALMETEROL XINAFOATE (FORMULATION UNKNOWN) (F [Suspect]
     Indication: ASTHMA
  2. VENTOLIN [Suspect]
     Indication: ASTHMA
     Dosage: NEBULISER
  3. INTERFERON [Concomitant]
  4. LEVOTHYROXINE SODIUM [Concomitant]
  5. AMANTADINE HCL [Concomitant]
  6. DONEPEZIL HCL [Concomitant]
  7. LETROZOLE [Concomitant]
  8. OXYBUTYNIN CHLORIDE [Concomitant]
  9. SODIUM CHLORIDE [Concomitant]

REACTIONS (7)
  - CHEST DISCOMFORT [None]
  - CONDITION AGGRAVATED [None]
  - DYSPNOEA [None]
  - FORCED EXPIRATORY VOLUME DECREASED [None]
  - MULTIPLE SCLEROSIS [None]
  - PARAESTHESIA [None]
  - PEAK EXPIRATORY FLOW RATE INCREASED [None]
